FAERS Safety Report 4519795-1 (Version None)
Quarter: 2004Q4

REPORT INFORMATION
  Report Type: 
  Country: None (occurrence: None)
  Receive Date: 20041202
  Receipt Date: 20041202
  Transmission Date: 20050328
  Serious: Yes (Hospitalization)
  Sender: FDA-Public Use
  Company Number: None

PATIENT
  Age: 61 Year
  Sex: Male
  Weight: 89.3586 kg

DRUGS (19)
  1. ESTRAMUSTINE 140 MG PO BID [Suspect]
     Indication: PROSTATE CANCER METASTATIC
     Dosage: 140 MG PO BID D 1-5 (SEE NOTES)
     Route: 048
     Dates: start: 20040503, end: 20040507
  2. ESTRAMUSTINE 140 MG PO BID [Suspect]
     Indication: PROSTATE CANCER METASTATIC
     Dosage: 140 MG PO BID D 1-5 (SEE NOTES)
     Route: 048
     Dates: start: 20040510, end: 20040514
  3. ESTRAMUSTINE 140 MG PO BID [Suspect]
     Indication: PROSTATE CANCER METASTATIC
     Dosage: 140 MG PO BID D 1-5 (SEE NOTES)
     Route: 048
     Dates: start: 20040517, end: 20040521
  4. ESTRAMUSTINE 140 MG PO BID [Suspect]
     Indication: PROSTATE CANCER METASTATIC
     Dosage: 140 MG PO BID D 1-5 (SEE NOTES)
     Route: 048
     Dates: start: 20040524, end: 20040528
  5. ESTRAMUSTINE 140 MG PO BID [Suspect]
     Indication: PROSTATE CANCER METASTATIC
     Dosage: 140 MG PO BID D 1-5 (SEE NOTES)
     Route: 048
     Dates: start: 20040531, end: 20040609
  6. ESTRAMUSTINE 140 MG PO BID [Suspect]
     Indication: PROSTATE CANCER METASTATIC
     Dosage: 140 MG PO BID D 1-5 (SEE NOTES)
     Route: 048
     Dates: start: 20040607, end: 20040611
  7. ESTRAMUSTINE 140 MG PO BID [Suspect]
     Indication: PROSTATE CANCER METASTATIC
     Dosage: 140 MG PO BID D 1-5 (SEE NOTES)
     Route: 048
     Dates: start: 20040705, end: 20040701
  8. ESTRAMUSTINE 140 MG PO BID [Suspect]
     Indication: PROSTATE CANCER METASTATIC
     Dosage: 140 MG PO BID D 1-5 (SEE NOTES)
     Route: 048
     Dates: start: 20040628, end: 20040702
  9. ESTRAMUSTINE 140 MG PO BID [Suspect]
     Indication: PROSTATE CANCER METASTATIC
     Dosage: 140 MG PO BID D 1-5 (SEE NOTES)
     Route: 048
     Dates: start: 20040712, end: 20040716
  10. ESTRAMUSTINE 140 MG PO BID [Suspect]
     Indication: PROSTATE CANCER METASTATIC
     Dosage: 140 MG PO BID D 1-5 (SEE NOTES)
     Route: 048
     Dates: start: 20040719, end: 20040726
  11. ESTRAMUSTINE 140 MG PO BID [Suspect]
     Indication: PROSTATE CANCER METASTATIC
     Dosage: 140 MG PO BID D 1-5 (SEE NOTES)
     Route: 048
     Dates: start: 20040727, end: 20040727
  12. TAXOTERE [Suspect]
     Indication: PROSTATE CANCER METASTATIC
     Dosage: TAXOTERE 40MG/M2
     Dates: start: 20040504
  13. TAXOTERE [Suspect]
     Indication: PROSTATE CANCER METASTATIC
     Dosage: TAXOTERE 40MG/M2
     Dates: start: 20040511
  14. TAXOTERE [Suspect]
     Indication: PROSTATE CANCER METASTATIC
     Dosage: TAXOTERE 40MG/M2
     Dates: start: 20040520
  15. TAXOTERE [Suspect]
     Indication: PROSTATE CANCER METASTATIC
     Dosage: TAXOTERE 40MG/M2
     Dates: start: 20040601
  16. TAXOTERE [Suspect]
     Indication: PROSTATE CANCER METASTATIC
     Dosage: TAXOTERE 40MG/M2
     Dates: start: 20040608
  17. TAXOTERE [Suspect]
     Indication: PROSTATE CANCER METASTATIC
     Dosage: TAXOTERE 40MG/M2
     Dates: start: 20040629
  18. TAXOTERE [Suspect]
     Indication: PROSTATE CANCER METASTATIC
     Dosage: TAXOTERE 40MG/M2
     Dates: start: 20040706
  19. TAXOTERE [Suspect]
     Indication: PROSTATE CANCER METASTATIC
     Dosage: TAXOTERE 40MG/M2
     Dates: start: 20040712

REACTIONS (1)
  - PNEUMONIA [None]
